FAERS Safety Report 19794022 (Version 10)
Quarter: 2022Q1

REPORT INFORMATION
  Report Type: Spontaneous
  Country: US (occurrence: US)
  Receive Date: 20210907
  Receipt Date: 20220210
  Transmission Date: 20220424
  Serious: No
  Sender: FDA-Public Use
  Company Number: US-GLAXOSMITHKLINE-US2021AMR185997

PATIENT
  Age: 83 Year
  Sex: Female

DRUGS (9)
  1. ZEJULA [Suspect]
     Active Substance: NIRAPARIB
     Indication: Product used for unknown indication
     Dosage: 300 MG, QD
     Dates: start: 20210821, end: 20210901
  2. ZEJULA [Suspect]
     Active Substance: NIRAPARIB
     Dosage: 200 MG, QD
  3. ZEJULA [Suspect]
     Active Substance: NIRAPARIB
     Dosage: 100 MG, QD
  4. ZEJULA [Suspect]
     Active Substance: NIRAPARIB
     Dosage: UNK (LOWER DOSE THAN 300MG QD)
  5. ZEJULA [Suspect]
     Active Substance: NIRAPARIB
     Dosage: UNK, Z (200 MG X2 DAYS THEN 100MG X2 DAYS)
     Dates: end: 20210901
  6. ZEJULA [Suspect]
     Active Substance: NIRAPARIB
     Dosage: UNK, Z (200 MG X2 DAYS THEN 100MG X2 DAYS)
  7. ZEJULA [Suspect]
     Active Substance: NIRAPARIB
     Dosage: 200 MG, QD
     Dates: end: 20220202
  8. TUMS [Suspect]
     Active Substance: CALCIUM CARBONATE
     Indication: Abdominal distension
     Dosage: UNK
  9. TUMS [Suspect]
     Active Substance: CALCIUM CARBONATE
     Indication: Abdominal pain

REACTIONS (30)
  - Constipation [Not Recovered/Not Resolved]
  - Arthralgia [Not Recovered/Not Resolved]
  - Oral pain [Unknown]
  - Sleep disorder [Unknown]
  - Full blood count abnormal [Unknown]
  - Arthritis [Unknown]
  - Taste disorder [Recovering/Resolving]
  - Red blood cell count decreased [Unknown]
  - Haemoglobin decreased [Unknown]
  - Glossodynia [Unknown]
  - Sleep disorder due to a general medical condition [Unknown]
  - Pain [Unknown]
  - Disturbance in attention [Unknown]
  - Dizziness [Not Recovered/Not Resolved]
  - Hypertension [Recovering/Resolving]
  - Abdominal discomfort [Unknown]
  - Decreased appetite [Unknown]
  - Lung disorder [Unknown]
  - Dry mouth [Unknown]
  - Abdominal distension [Unknown]
  - Abdominal pain [Unknown]
  - Flatulence [Unknown]
  - Diarrhoea [Unknown]
  - Neck pain [Unknown]
  - Pulmonary mass [Unknown]
  - Disease progression [Unknown]
  - Incorrect dosage administered [Unknown]
  - Inappropriate schedule of product administration [Unknown]
  - Product use in unapproved indication [Unknown]
  - Product dose omission issue [Unknown]

NARRATIVE: CASE EVENT DATE: 20220101
